FAERS Safety Report 6504541-2 (Version None)
Quarter: 2009Q4

REPORT INFORMATION
  Report Type: 
  Country: None (occurrence: None)
  Receive Date: 20091215
  Receipt Date: 20091204
  Transmission Date: 20100525
  Serious: Yes (Hospitalization)
  Sender: FDA-Public Use
  Company Number: 2009AC000294

PATIENT
  Age: 70 Year
  Sex: Female

DRUGS (32)
  1. DIGOXIN [Suspect]
     Dosage: 0.25 MG;QD;PO
     Route: 048
     Dates: start: 20080225
  2. COUMADIN [Concomitant]
  3. ASPIRIN [Concomitant]
  4. CARTIA XT [Concomitant]
  5. CLONIDINE [Concomitant]
  6. HYDROCHLOROTHIAZIDE [Concomitant]
  7. VYTORIN [Concomitant]
  8. FISH OIL [Concomitant]
  9. THYROID TAB [Concomitant]
  10. PREDNISONE [Concomitant]
  11. NEURO B-12 [Concomitant]
  12. CALCIUM [Concomitant]
  13. AMBIEN [Concomitant]
  14. ULTRAM [Concomitant]
  15. COUMADIN [Concomitant]
  16. CILOSTAZOL [Concomitant]
  17. TOPROL-XL [Concomitant]
  18. CLONIDNE [Concomitant]
  19. HYZAAR [Concomitant]
  20. SIMVASTATIN [Concomitant]
  21. DOCUSATE [Concomitant]
  22. I-VITE [Concomitant]
  23. SYNTHROID [Concomitant]
  24. AMLODIPINE [Concomitant]
  25. METOPROLOL TARTRATE [Concomitant]
  26. TRAMADOL [Concomitant]
  27. CILOSTAZOL [Concomitant]
  28. ZOLPIDEM TARTRATE [Concomitant]
  29. LIDODERM [Concomitant]
  30. WARFARIN [Concomitant]
  31. FAMVIR [Concomitant]
  32. ATIVAN [Concomitant]

REACTIONS (24)
  - ACTINIC KERATOSIS [None]
  - ASTHENIA [None]
  - ATRIAL FIBRILLATION [None]
  - AUTONOMIC NERVOUS SYSTEM IMBALANCE [None]
  - BASAL CELL CARCINOMA [None]
  - BLOOD PRESSURE FLUCTUATION [None]
  - CARDIAC FLUTTER [None]
  - CARDIOACTIVE DRUG LEVEL INCREASED [None]
  - CONFUSIONAL STATE [None]
  - ECONOMIC PROBLEM [None]
  - EMOTIONAL DISORDER [None]
  - EYE HAEMORRHAGE [None]
  - HERPES ZOSTER [None]
  - HYPERTENSION [None]
  - LENTIGO [None]
  - MULTIPLE INJURIES [None]
  - NEOPLASM SKIN [None]
  - OEDEMA [None]
  - PAIN [None]
  - PRODUCT QUALITY ISSUE [None]
  - RASH [None]
  - SURGERY [None]
  - THERAPEUTIC AGENT TOXICITY [None]
  - VISION BLURRED [None]
